FAERS Safety Report 9266661 (Version 2)
Quarter: 2014Q2

REPORT INFORMATION
  Report Type: Spontaneous
  Country: US (occurrence: US)
  Receive Date: 20130502
  Receipt Date: 20140603
  Transmission Date: 20141212
  Serious: Yes (Hospitalization, Other)
  Sender: FDA-Public Use
  Company Number: US-ASTELLAS-2013US004533

PATIENT
  Sex: Male

DRUGS (3)
  1. XTANDI [Suspect]
     Indication: ILL-DEFINED DISORDER
     Route: 048
     Dates: start: 20121210
  2. XTANDI [Suspect]
     Route: 048
  3. XTANDI [Suspect]
     Route: 048

REACTIONS (2)
  - Myocardial infarction [Unknown]
  - Renal failure [Unknown]
